FAERS Safety Report 6419490-8 (Version None)
Quarter: 2009Q4

REPORT INFORMATION
  Report Type: 
  Country: None (occurrence: None)
  Receive Date: 20091029
  Receipt Date: 20091021
  Transmission Date: 20100525
  Serious: Yes (Other)
  Sender: FDA-Public Use
  Company Number: GB-ABBOTT-09P-167-0604269-00

PATIENT
  Age: 41 Year
  Sex: Female

DRUGS (5)
  1. VALPROATE SODIUM [Suspect]
     Indication: DEPRESSION
     Route: 048
  2. CLOZARIL [Suspect]
     Indication: SCHIZOPHRENIA
     Route: 048
     Dates: start: 20081003, end: 20081121
  3. CLOZARIL [Suspect]
     Route: 048
     Dates: start: 20081205, end: 20090118
  4. CITALOPRAM [Concomitant]
     Indication: DEPRESSION
  5. LITHIUM CARBONATE [Concomitant]
     Indication: DEPRESSION

REACTIONS (8)
  - AGITATION [None]
  - APHASIA [None]
  - EXTRAPYRAMIDAL DISORDER [None]
  - MUSCLE RIGIDITY [None]
  - MUSCULOSKELETAL STIFFNESS [None]
  - MUTISM [None]
  - SOMNOLENCE [None]
  - TREMOR [None]
